FAERS Safety Report 17460171 (Version 1)
Quarter: 2020Q1

REPORT INFORMATION
  Report Type: Spontaneous
  Country: US (occurrence: US)
  Receive Date: 20200226
  Receipt Date: 20200226
  Transmission Date: 20200409
  Serious: Yes (Other)
  Sender: FDA-Public Use
  Company Number: US-SA-2020SA044986

PATIENT
  Age: 87 Year
  Sex: Male

DRUGS (1)
  1. ZANTAC 150 (RANITIDINE HYDROCHLORIDE) [Suspect]
     Active Substance: RANITIDINE HYDROCHLORIDE
     Indication: REFLUX GASTRITIS
     Dosage: UNK

REACTIONS (3)
  - Oesophageal carcinoma [Unknown]
  - Pancreatitis [Unknown]
  - Weight decreased [Unknown]
